FAERS Safety Report 7800170-9 (Version None)
Quarter: 2011Q4

REPORT INFORMATION
  Report Type: 
  Country: None (occurrence: None)
  Receive Date: 20111006
  Receipt Date: 20110930
  Transmission Date: 20120403
  Serious: Yes (Disabling)
  Sender: FDA-Public Use
  Company Number: US-MERCK-1109USA01911

PATIENT
  Age: 64 Year
  Sex: Female

DRUGS (4)
  1. FOSAMAX [Suspect]
     Indication: OSTEOPOROSIS
     Route: 048
     Dates: start: 20000101, end: 20100101
  2. FOSAMAX [Suspect]
     Route: 048
     Dates: start: 20000101, end: 20100101
  3. FOSAMAX [Suspect]
     Route: 048
     Dates: start: 20000101, end: 20100101
  4. FOSAMAX [Suspect]
     Route: 048
     Dates: start: 20000101, end: 20100101

REACTIONS (5)
  - OSTEOPOROSIS [None]
  - TOOTH DISORDER [None]
  - FEMUR FRACTURE [None]
  - ANXIETY [None]
  - LOW TURNOVER OSTEOPATHY [None]
